FAERS Safety Report 9934747 (Version 1)
Quarter: 2014Q1

REPORT INFORMATION
  Report Type: Spontaneous
  Country: US (occurrence: US)
  Receive Date: 20140228
  Receipt Date: 20140228
  Transmission Date: 20141002
  Serious: No
  Sender: FDA-Public Use
  Company Number: US-ASTRAZENECA-2013SE71845

PATIENT
  Age: 19 Year
  Sex: Male
  Weight: 54.4 kg

DRUGS (2)
  1. TOPROL XL [Suspect]
     Indication: CARDIAC DISORDER
     Route: 048
  2. TOPROL XL [Suspect]
     Indication: ANXIETY
     Route: 048

REACTIONS (4)
  - Tachycardia [Not Recovered/Not Resolved]
  - Anxiety [Not Recovered/Not Resolved]
  - Off label use [Not Recovered/Not Resolved]
  - Drug dose omission [Not Recovered/Not Resolved]
